FAERS Safety Report 5158273-6 (Version None)
Quarter: 2006Q4

REPORT INFORMATION
  Report Type: 
  Country: None (occurrence: None)
  Receive Date: 20061128
  Receipt Date: 20061122
  Transmission Date: 20070319
  Serious: Yes (Hospitalization, Other)
  Sender: FDA-Public Use
  Company Number: US-JNJFOC-20061000431

PATIENT
  Sex: Male
  Weight: 80 kg

DRUGS (23)
  1. REOPRO [Suspect]
     Indication: PROPHYLAXIS
  2. METOPROLOL TARTRATE [Concomitant]
     Indication: HYPERTENSION
  3. SIMVASTATIN [Concomitant]
     Indication: HIGH DENSITY LIPOPROTEIN DECREASED
  4. ASPIRIN [Concomitant]
     Indication: PROPHYLAXIS
  5. NITROGLYCERIN [Concomitant]
     Indication: ANGINA PECTORIS
  6. HYDRALAZINE HCL [Concomitant]
     Indication: HYPERTENSION
  7. FENTANYL [Concomitant]
     Indication: PAIN PROPHYLAXIS
  8. VERSED [Concomitant]
     Indication: SEDATION
  9. ZOFRAN [Concomitant]
     Indication: NAUSEA
  10. FOLIC ACID [Concomitant]
     Indication: VITAMIN SUPPLEMENTATION
  11. HALOPERIDOL LACTATE [Concomitant]
     Indication: PROPHYLAXIS
  12. HYDROCHLOROTHIAZIDE [Concomitant]
     Indication: HYPERTENSION
  13. LISINOPRIL [Concomitant]
     Indication: HYPERTENSION
  14. LORAZEPAM [Concomitant]
     Indication: PROPHYLAXIS
  15. MORPHINE SULFATE [Concomitant]
     Indication: CHEST PAIN
  16. VITAMIN CAP [Concomitant]
     Indication: PROPHYLAXIS
  17. NICOTINE [Concomitant]
     Indication: SMOKING CESSATION THERAPY
  18. POTASSIUM CHLORIDE [Concomitant]
     Indication: PROPHYLAXIS
  19. THIAMINE [Concomitant]
     Indication: PROPHYLAXIS
  20. LOVENOX [Concomitant]
     Indication: PROPHYLAXIS
  21. LASIX [Concomitant]
     Indication: CARDIAC FAILURE
  22. ISORDIL [Concomitant]
     Indication: ANGINA PECTORIS
  23. COUMADIN [Concomitant]
     Indication: ANTICOAGULANT THERAPY

REACTIONS (4)
  - CARDIAC FAILURE CONGESTIVE [None]
  - ILIAC VEIN OCCLUSION [None]
  - PNEUMONIA [None]
  - THROMBOSIS [None]
